FAERS Safety Report 19360695 (Version 2)
Quarter: 2022Q2

REPORT INFORMATION
  Report Type: Report from Study
  Country: US (occurrence: None)
  Receive Date: 20210602
  Receipt Date: 20220615
  Transmission Date: 20220721
  Serious: No
  Sender: FDA-Public Use
  Company Number: US-MDD US OPERATIONS-MDD202008-001605

PATIENT
  Age: 70 Year
  Sex: Female
  Weight: 65.81 kg

DRUGS (2)
  1. APOKYN [Suspect]
     Active Substance: APOMORPHINE HYDROCHLORIDE
     Indication: Parkinson^s disease
     Dosage: UP TO 0.22 ML /DOSE
     Route: 058
  2. APOKYN [Suspect]
     Active Substance: APOMORPHINE HYDROCHLORIDE
     Route: 058

REACTIONS (5)
  - Lower respiratory tract congestion [Unknown]
  - Dyspnoea [Unknown]
  - Hyperhidrosis [Unknown]
  - Needle issue [Unknown]
  - Device dispensing error [Unknown]
